FAERS Safety Report 9264748 (Version 1)
Quarter: 2013Q2

REPORT INFORMATION
  Report Type: Spontaneous
  Country: US (occurrence: None)
  Receive Date: 20130429
  Receipt Date: 20130429
  Transmission Date: 20140414
  Serious: Yes (Hospitalization)
  Sender: FDA-Public Use
  Company Number: None

PATIENT
  Age: 69 Year
  Sex: Female

DRUGS (1)
  1. SUTENT [Suspect]
     Indication: NEOPLASM MALIGNANT
     Dosage: DAILY 4 OR 6 WEEKS
     Route: 048
     Dates: start: 20130323, end: 20130401

REACTIONS (1)
  - Unevaluable event [None]
